FAERS Safety Report 12218814 (Version 2)
Quarter: 2016Q2

REPORT INFORMATION
  Report Type: Report from Study
  Country: US (occurrence: US)
  Receive Date: 20160329
  Receipt Date: 20160519
  Transmission Date: 20160815
  Serious: Yes (Other)
  Sender: FDA-Public Use
  Company Number: US-MDT-ADR-2016-00582

PATIENT
  Age: 7 Year
  Sex: Male

DRUGS (3)
  1. LIORESAL [Suspect]
     Active Substance: BACLOFEN
     Dosage: 145.6 MCG/DAY
     Route: 037
     Dates: start: 20090402
  2. COMPOUNDED BACLOFEN [Suspect]
     Active Substance: BACLOFEN
     Route: 037
  3. LIORESAL [Suspect]
     Active Substance: BACLOFEN
     Dosage: 159.8 MCG/DAY
     Route: 037
     Dates: start: 20090409

REACTIONS (1)
  - Drug withdrawal syndrome [Recovered/Resolved]

NARRATIVE: CASE EVENT DATE: 20090409
